FAERS Safety Report 9340043 (Version 1)
Quarter: 2013Q2

REPORT INFORMATION
  Report Type: Spontaneous
  Country: RU (occurrence: RU)
  Receive Date: 20130610
  Receipt Date: 20130610
  Transmission Date: 20140414
  Serious: Yes (Other)
  Sender: FDA-Public Use
  Company Number: RU-PFIZER INC-2013170427

PATIENT
  Sex: Male

DRUGS (1)
  1. SUTENT [Suspect]
     Indication: RENAL CANCER METASTATIC
     Dosage: 50 MG, 1X/DAY, DURING 4 WEEKS AND THEN 2 WEEKS OFF
     Route: 048
     Dates: start: 201211, end: 201304

REACTIONS (1)
  - Adrenal insufficiency [Unknown]
